FAERS Safety Report 15374305 (Version 1)
Quarter: 2018Q3

REPORT INFORMATION
  Report Type: Spontaneous
  Country: IT (occurrence: IT)
  Receive Date: 20180912
  Receipt Date: 20180912
  Transmission Date: 20181010
  Serious: Yes (Other)
  Sender: FDA-Public Use
  Company Number: IT-TEVA-2018-IT-953995

PATIENT
  Age: 33 Year
  Sex: Male

DRUGS (7)
  1. EN [Concomitant]
     Active Substance: DELORAZEPAM
     Indication: ANXIETY
     Route: 048
  2. DEPAKIN [Concomitant]
     Active Substance: VALPROATE SODIUM
     Indication: PRODUCT USED FOR UNKNOWN INDICATION
  3. CLOZAPINE. [Suspect]
     Active Substance: CLOZAPINE
     Indication: OFF LABEL USE
     Route: 048
     Dates: start: 20141028
  4. ENTUMIN [Concomitant]
     Active Substance: CLOTHIAPINE
     Indication: INSOMNIA
  5. CLOZAPINE. [Suspect]
     Active Substance: CLOZAPINE
     Indication: HYSTERICAL PSYCHOSIS
     Dosage: 400 MILLIGRAM DAILY;
     Route: 048
     Dates: start: 20141028
  6. CLOZAPINE. [Suspect]
     Active Substance: CLOZAPINE
     Indication: HYSTERICAL PSYCHOSIS
     Route: 048
  7. CLOZAPINE. [Suspect]
     Active Substance: CLOZAPINE
     Indication: OFF LABEL USE
     Route: 048

REACTIONS (2)
  - Agranulocytosis [Unknown]
  - Off label use [Unknown]

NARRATIVE: CASE EVENT DATE: 20141028
